FAERS Safety Report 6667856-3 (Version None)
Quarter: 2010Q2

REPORT INFORMATION
  Report Type: 
  Country: None (occurrence: None)
  Receive Date: 20100405
  Receipt Date: 20100323
  Transmission Date: 20101027
  Serious: Yes (Other)
  Sender: FDA-Public Use
  Company Number: US-PFIZER INC-2010037376

PATIENT
  Sex: Female
  Weight: 64.853 kg

DRUGS (1)
  1. CHANTIX [Suspect]
     Indication: SMOKING CESSATION THERAPY
     Dosage: 1 MG, 2X/DAY
     Route: 048
     Dates: start: 20100202

REACTIONS (8)
  - AGITATION [None]
  - ANGER [None]
  - DRUG DOSE OMISSION [None]
  - HEADACHE [None]
  - HOMICIDAL IDEATION [None]
  - INITIAL INSOMNIA [None]
  - IRRITABILITY [None]
  - MOOD ALTERED [None]
